FAERS Safety Report 6754601-6 (Version None)
Quarter: 2010Q2

REPORT INFORMATION
  Report Type: 
  Country: None (occurrence: None)
  Receive Date: 20100603
  Receipt Date: 20100527
  Transmission Date: 20101027
  Serious: Yes (Hospitalization)
  Sender: FDA-Public Use
  Company Number: CN-MILLENNIUM PHARMACEUTICALS, INC.-2010-02527

PATIENT

DRUGS (3)
  1. VELCADE [Suspect]
     Indication: MULTIPLE MYELOMA
     Dosage: 2.7 MG, UNK
     Route: 042
     Dates: start: 20100401, end: 20100504
  2. DEXAMETHASONE [Suspect]
     Indication: MULTIPLE MYELOMA
     Dosage: 40 MG, UNK
     Dates: start: 20100401
  3. CEFACLOR [Concomitant]
     Indication: BRONCHOPNEUMONIA
     Dosage: 375 MG, UNK
     Route: 048
     Dates: start: 20100421, end: 20100501

REACTIONS (1)
  - LUNG INFECTION [None]
